FAERS Safety Report 9564954 (Version 3)
Quarter: 2014Q2

REPORT INFORMATION
  Report Type: Report from Study
  Country: US (occurrence: US)
  Receive Date: 20130930
  Receipt Date: 20140414
  Transmission Date: 20141212
  Serious: Yes (Other)
  Sender: FDA-Public Use
  Company Number: PHEH2013US019771

PATIENT
  Age: 40 Year
  Sex: Female
  Weight: 94 kg

DRUGS (27)
  1. AFINITOR [Suspect]
     Indication: ANGIOMYOLIPOMA
     Dosage: 5 MG, QD
     Route: 048
     Dates: start: 20130829
  2. AFINITOR [Suspect]
     Dosage: 5 MG, QD
     Route: 048
     Dates: start: 20130904, end: 20130920
  3. AFINITOR [Suspect]
     Dosage: 5 MG, QD
     Route: 048
     Dates: start: 20130928, end: 20140314
  4. CLONIDINE [Concomitant]
  5. TOPAMAX [Concomitant]
     Dosage: 100 MG, QD
     Route: 048
  6. TOPAMAX [Concomitant]
     Dosage: 200 MG, QD
     Route: 048
  7. MULTIPLE VITAMINS [Concomitant]
  8. DEPAKOTE [Concomitant]
  9. CONSTULOSE [Concomitant]
  10. FLONASE [Concomitant]
  11. LEVOTHYROXINE [Concomitant]
  12. PINK BISMUTH [Concomitant]
  13. SODIUM BICARBONATE [Concomitant]
  14. TRIAMCINOLONE ACETONIDE [Concomitant]
  15. TYLENOL CHILDRENS PLUS COLD + COUGH [Concomitant]
  16. CORTISPORIN [Concomitant]
  17. FENOFIBRATE [Concomitant]
  18. LOVASTATIN [Concomitant]
  19. DOCUSATE SODIUM [Concomitant]
  20. ALESSE [Concomitant]
     Dosage: 1 DF, QD
     Route: 048
  21. SEROQUEL [Concomitant]
     Dosage: 100 MG, BID
     Route: 048
  22. CLARITIN [Concomitant]
  23. MULTI VITAMIN + MINERAL [Concomitant]
     Dosage: 1 DF, QD
     Route: 048
  24. AQUAPHOR OINTMENT [Concomitant]
     Dosage: 1 DF, PRN
     Route: 061
  25. KENALOG                            /00806701/ [Concomitant]
     Dosage: 1 DF, PRN
     Route: 061
  26. CORTISPORIN OPHTHALMIC SUSPENSION [Concomitant]
     Dosage: 1 DF, BID
     Route: 050
  27. SUNSCREEN [Concomitant]
     Dosage: 1 DF, PRN
     Route: 061

REACTIONS (12)
  - Petechiae [Unknown]
  - Ammonia increased [Unknown]
  - Contusion [Recovered/Resolved]
  - Urinary incontinence [Unknown]
  - Drooling [Unknown]
  - Confusional state [Recovering/Resolving]
  - Hypophagia [Recovering/Resolving]
  - Hypersomnia [Unknown]
  - Peripheral swelling [Unknown]
  - Rash [Recovered/Resolved]
  - Diarrhoea [Not Recovered/Not Resolved]
  - Frequent bowel movements [Unknown]
